FAERS Safety Report 6449672-0 (Version None)
Quarter: 2009Q4

REPORT INFORMATION
  Report Type: 
  Country: None (occurrence: None)
  Receive Date: 20091120
  Receipt Date: 20091117
  Transmission Date: 20100525
  Serious: Yes (Death, Hospitalization)
  Sender: FDA-Public Use
  Company Number: FR-B.I. PHARMACEUTICALS,INC./RIDGEFIELD-2003-FF-00381FF

PATIENT
  Sex: Male

DRUGS (8)
  1. TAMSULOSIN [Suspect]
     Route: 048
     Dates: end: 20030509
  2. TAMSULOSIN [Suspect]
     Route: 048
     Dates: start: 20030513, end: 20030515
  3. FLUINDIONE [Suspect]
     Dosage: 5 MG
     Route: 048
     Dates: start: 20030401, end: 20030512
  4. FUROSEMIDE [Suspect]
     Dosage: 40 MG
     Route: 048
     Dates: end: 20030512
  5. PROSCAR [Concomitant]
     Route: 048
     Dates: end: 20030509
  6. PROSCAR [Concomitant]
     Route: 048
     Dates: start: 20030513, end: 20030515
  7. ZESTRIL [Concomitant]
     Dosage: 20 MG
     Route: 048
     Dates: end: 20030512
  8. EUPHYLLINE [Concomitant]
     Dosage: 600 MG
     Route: 048
     Dates: end: 20030512

REACTIONS (2)
  - DEATH [None]
  - TUBULOINTERSTITIAL NEPHRITIS [None]
